FAERS Safety Report 21796117 (Version 1)
Quarter: 2022Q4

REPORT INFORMATION
  Report Type: Spontaneous
  Country: US (occurrence: None)
  Receive Date: 20221228
  Receipt Date: 20221228
  Transmission Date: 20230112
  Serious: Yes (Hospitalization)
  Sender: FDA-Public Use
  Company Number: None

PATIENT
  Age: 57 Year
  Sex: Female

DRUGS (1)
  1. TOBRAMYCIN [Suspect]
     Active Substance: TOBRAMYCIN
     Indication: Chronic sinusitis
     Dosage: 80MG/2ML TWOCE DAO;U ONMTRA-NASAL? ?
     Route: 045
     Dates: start: 202208

REACTIONS (1)
  - Sinusitis [None]

NARRATIVE: CASE EVENT DATE: 20221010
